FAERS Safety Report 5463786-3 (Version None)
Quarter: 2007Q3

REPORT INFORMATION
  Report Type: 
  Country: None (occurrence: None)
  Receive Date: 20070919
  Receipt Date: 20070907
  Transmission Date: 20080115
  Serious: Yes (Hospitalization, Other)
  Sender: FDA-Public Use
  Company Number: A-US2007-17537

PATIENT
  Age: 32 Year
  Sex: Female
  Weight: 83 kg

DRUGS (6)
  1. TRACLEER [Suspect]
     Indication: PULMONARY HYPERTENSION
     Dosage: 125 MG, BID, ORAL; 62.5 MG, BID, ORAL
     Route: 048
     Dates: start: 20070131, end: 20070727
  2. TRACLEER [Suspect]
     Indication: PULMONARY HYPERTENSION
     Dosage: 125 MG, BID, ORAL; 62.5 MG, BID, ORAL
     Route: 048
     Dates: start: 20070101, end: 20070810
  3. FLOLAN [Suspect]
     Dosage: 20 NG/KG, PER MIN,
     Dates: start: 20060701
  4. LASIX [Concomitant]
  5. COUMADIN [Concomitant]
  6. PERCOCET [Concomitant]

REACTIONS (20)
  - BACK PAIN [None]
  - BURNING SENSATION [None]
  - CENTRAL LINE INFECTION [None]
  - DEEP VEIN THROMBOSIS [None]
  - DIARRHOEA [None]
  - DYSPNOEA [None]
  - ERYTHEMA [None]
  - EYE IRRITATION [None]
  - FATIGUE [None]
  - MALAISE [None]
  - OEDEMA [None]
  - PAIN IN EXTREMITY [None]
  - POST PROCEDURAL CELLULITIS [None]
  - RECTAL HAEMORRHAGE [None]
  - SEPSIS [None]
  - STAPHYLOCOCCAL INFECTION [None]
  - TENDERNESS [None]
  - TRANSAMINASES INCREASED [None]
  - VAGINAL HAEMORRHAGE [None]
  - WOUND SECRETION [None]
